FAERS Safety Report 22211786 (Version 1)
Quarter: 2023Q2

REPORT INFORMATION
  Report Type: Spontaneous
  Country: CH (occurrence: CH)
  Receive Date: 20230414
  Receipt Date: 20230414
  Transmission Date: 20230722
  Serious: Yes (Hospitalization)
  Sender: FDA-Public Use
  Company Number: None

PATIENT
  Age: 71 Year
  Sex: Female
  Weight: 87.1 kg

DRUGS (17)
  1. CISPLATIN [Suspect]
     Active Substance: CISPLATIN
     Indication: Product used for unknown indication
     Route: 041
     Dates: start: 20230309, end: 20230311
  2. IFOSFAMIDE [Suspect]
     Active Substance: IFOSFAMIDE
     Indication: Product used for unknown indication
     Route: 041
     Dates: start: 20230309, end: 20230311
  3. MESNA [Concomitant]
     Active Substance: MESNA
     Indication: Product used for unknown indication
     Dosage: 800 MILLIGRAM DAILY; 400 MG/M2 IV, I.E. 800 MG ON D1
  4. MESNA [Concomitant]
     Active Substance: MESNA
     Dosage: 3200 MILLIGRAM DAILY; 2000 MG/M2 IV, I.E. 3200 MG/D FROM D1 TO D5
  5. MESNA [Concomitant]
     Active Substance: MESNA
     Dosage: 2000 MILLIGRAM DAILY; 1000 MG/M2 IV, I.E. 2000 MG ON D6
  6. VALPROATE SODIUM [Concomitant]
     Active Substance: VALPROATE SODIUM
     Indication: Product used for unknown indication
     Dosage: 500MG MORNING AND 650MG EVENING
  7. ESCITALOPRAM OXALATE [Concomitant]
     Active Substance: ESCITALOPRAM OXALATE
     Indication: Product used for unknown indication
     Dosage: 10 MILLIGRAM DAILY; 10MG 1X/D
  8. Temesta [Concomitant]
     Indication: Product used for unknown indication
     Dosage: 1MG 2X/D (MORNING AND EVENING) 0.5MG 1X/D LUNCH
  9. QUETIAPINE [Concomitant]
     Active Substance: QUETIAPINE
     Indication: Product used for unknown indication
     Dosage: 200 MILLIGRAM DAILY; 100MG 2X/D
  10. MOVICOL [Concomitant]
     Active Substance: POLYETHYLENE GLYCOL 3350\POTASSIUM CHLORIDE\SODIUM BICARBONATE\SODIUM CHLORIDE
     Indication: Product used for unknown indication
     Dosage: 1 SACHET 1X/D IN R
  11. DAFALGAN [Concomitant]
     Active Substance: ACETAMINOPHEN
     Indication: Product used for unknown indication
     Dosage: 400 MILLIGRAM DAILY;
  12. FREKA-CLYSS [Concomitant]
     Indication: Product used for unknown indication
     Dosage: 133 ML DAILY; 133ML 1X/D IN R
  13. SORBITOL [Concomitant]
     Active Substance: SORBITOL
     Indication: Product used for unknown indication
     Dosage: 15 ML DAILY; 15ML 1X/D IN R
  14. FOLIC ACID [Concomitant]
     Active Substance: FOLIC ACID
     Indication: Product used for unknown indication
     Dosage: 5 MILLIGRAM DAILY; 5MG 1X/D
  15. POTASSIUM CHLORIDE [Concomitant]
     Active Substance: POTASSIUM CHLORIDE
     Indication: Product used for unknown indication
     Dosage: 90 MILLIMOL DAILY; 30MMOL 3X/D
  16. SODIUM PHOSPHATE [Concomitant]
     Active Substance: SODIUM PHOSPHATE
     Indication: Product used for unknown indication
     Dosage: 1500 MILLIGRAM DAILY; 500MG 3X/D
  17. SODIUM PICOSULFATE [Concomitant]
     Active Substance: SODIUM PICOSULFATE
     Indication: Product used for unknown indication
     Dosage: 10 MILLIGRAM DAILY; 10MG 1X/D

REACTIONS (2)
  - Haematuria [Recovered/Resolved]
  - Pancytopenia [Recovering/Resolving]

NARRATIVE: CASE EVENT DATE: 20230320
